FAERS Safety Report 18105892 (Version 4)
Quarter: 2020Q3

REPORT INFORMATION
  Report Type: Spontaneous
  Country: US (occurrence: US)
  Receive Date: 20200803
  Receipt Date: 20200824
  Transmission Date: 20201103
  Serious: No
  Sender: FDA-Public Use
  Company Number: US-ACTELION-A-NJ2020-207204

PATIENT
  Age: 86 Year
  Sex: Female
  Weight: 77.1 kg

DRUGS (5)
  1. MONTELUKAST [Concomitant]
     Active Substance: MONTELUKAST SODIUM
     Indication: HYPERSENSITIVITY
     Dosage: 10 MG
     Route: 048
     Dates: start: 202006
  2. OPSUMIT [Suspect]
     Active Substance: MACITENTAN
     Indication: PULMONARY ARTERIAL HYPERTENSION
     Dosage: 10 MG, QD
     Route: 048
     Dates: start: 20200615
  3. OXYGEN. [Concomitant]
     Active Substance: OXYGEN
     Indication: PULMONARY ARTERIAL HYPERTENSION
     Dosage: 3 L, BID
     Route: 045
  4. CLARITIN [Concomitant]
     Active Substance: LORATADINE
  5. BUDESONIDE. [Concomitant]
     Active Substance: BUDESONIDE
     Indication: ASTHMA
     Dosage: UNK, BID
     Route: 055

REACTIONS (18)
  - Feeling hot [Unknown]
  - Product dose omission issue [Unknown]
  - Paranasal sinus hypersecretion [Unknown]
  - Rash macular [Recovering/Resolving]
  - Peripheral swelling [Unknown]
  - Hot flush [Unknown]
  - Erythema [Unknown]
  - Dyspnoea [Unknown]
  - Rash [Recovering/Resolving]
  - Face oedema [Unknown]
  - Chapped lips [Unknown]
  - Flushing [Unknown]
  - Agitation [Unknown]
  - Acne [Unknown]
  - Condition aggravated [Unknown]
  - Swelling of eyelid [Unknown]
  - Sinusitis [Unknown]
  - Weight increased [Unknown]

NARRATIVE: CASE EVENT DATE: 202007
